FAERS Safety Report 17437048 (Version 1)
Quarter: 2020Q1

REPORT INFORMATION
  Report Type: Report from Study
  Country: US (occurrence: US)
  Receive Date: 20200219
  Receipt Date: 20200219
  Transmission Date: 20200409
  Serious: No
  Sender: FDA-Public Use
  Company Number: PHHY2015US028412

PATIENT
  Age: 47 Year
  Sex: Female

DRUGS (21)
  1. NITROFURANTOIN. [Concomitant]
     Active Substance: NITROFURANTOIN
     Indication: URINARY TRACT INFECTION
     Dosage: UNK
     Route: 065
     Dates: start: 20150114, end: 20150429
  2. ARTIFICIAL TEARS//HYPROMELLOSE [Concomitant]
     Indication: PROPHYLAXIS
     Dosage: UNK
     Route: 065
     Dates: start: 20120927, end: 20150114
  3. MAGNESIUM [Concomitant]
     Active Substance: MAGNESIUM
     Indication: SUPPLEMENTATION THERAPY
     Dosage: UNK
     Route: 065
     Dates: start: 20150114
  4. PRENATAL [Concomitant]
     Active Substance: VITAMINS
     Indication: SUPPLEMENTATION THERAPY
     Dosage: UNK
     Route: 065
     Dates: start: 20120927, end: 20160729
  5. FIBER [Concomitant]
     Active Substance: PSYLLIUM HUSK
     Indication: SUPPLEMENTATION THERAPY
     Dosage: UNK
     Route: 065
     Dates: start: 20150114, end: 20150205
  6. TOVIAZ [Concomitant]
     Active Substance: FESOTERODINE FUMARATE
     Indication: HYPERTONIC BLADDER
     Dosage: UNK
     Route: 065
     Dates: start: 20120927, end: 20130114
  7. XOLEGEL DUO [Concomitant]
     Indication: RASH PRURITIC
     Dosage: UNK
     Route: 065
     Dates: start: 20141223
  8. MUPIROCIN. [Concomitant]
     Active Substance: MUPIROCIN
     Indication: RASH PRURITIC
     Dosage: 2 %, UNK
     Route: 065
     Dates: start: 20141223, end: 20151030
  9. BOTOX [Concomitant]
     Active Substance: ONABOTULINUMTOXINA
     Indication: HYPERTONIC BLADDER
     Dosage: UNK
     Route: 065
     Dates: start: 20150625
  10. COLACE [Concomitant]
     Active Substance: DOCUSATE SODIUM
     Indication: CONSTIPATION
     Dosage: UNK
     Route: 065
     Dates: start: 20120927, end: 20161026
  11. TEMAZEPAM. [Concomitant]
     Active Substance: TEMAZEPAM
     Indication: SLEEP APNOEA SYNDROME
     Dosage: UNK
     Route: 065
     Dates: start: 20160127, end: 20180328
  12. OXYBUTYNIN. [Concomitant]
     Active Substance: OXYBUTYNIN CHLORIDE
     Indication: HYPERTONIC BLADDER
     Dosage: UNK
     Route: 065
     Dates: start: 20130114
  13. ATRALIN//TRETINOIN [Concomitant]
     Indication: RASH PRURITIC
     Dosage: 0.05 OT, UNK
     Route: 065
     Dates: start: 20141223, end: 20151030
  14. CLOBETASOL PROPIONATE. [Concomitant]
     Active Substance: CLOBETASOL PROPIONATE
     Indication: RASH PRURITIC
     Dosage: UNK
     Route: 065
     Dates: start: 20150114, end: 20151030
  15. BENADRYL                           /00647601/ [Concomitant]
     Active Substance: CAMPHOR\DIPHENHYDRAMINE\ZINC OXIDE
     Indication: SLEEP APNOEA SYNDROME
     Dosage: UNK
     Route: 065
     Dates: start: 20150625, end: 20161026
  16. MULTI VITAMIN [Concomitant]
     Active Substance: VITAMINS
     Indication: SUPPLEMENTATION THERAPY
     Dosage: UNK
     Route: 065
     Dates: start: 20150114
  17. GILENYA [Suspect]
     Active Substance: FINGOLIMOD HYDROCHLORIDE
     Indication: MULTIPLE SCLEROSIS
     Dosage: UNK, QD
     Route: 048
  18. MYRBETRIQ [Concomitant]
     Active Substance: MIRABEGRON
     Indication: HYPERTONIC BLADDER
     Dosage: UNK
     Route: 065
     Dates: start: 20130924, end: 20141223
  19. CORDRAN [Concomitant]
     Active Substance: FLURANDRENOLIDE
     Indication: RASH PRURITIC
     Dosage: UNK
     Route: 065
     Dates: start: 20141223, end: 20151030
  20. CLINDAMYCIN. [Concomitant]
     Active Substance: CLINDAMYCIN
     Indication: RASH PRURITIC
     Dosage: 1 %, UNK
     Route: 065
     Dates: start: 20141223
  21. AMBIEN [Concomitant]
     Active Substance: ZOLPIDEM TARTRATE
     Indication: SLEEP APNOEA SYNDROME
     Dosage: UNK
     Route: 065
     Dates: start: 20150625, end: 20160127

REACTIONS (2)
  - Spinal osteoarthritis [Unknown]
  - Ligament sprain [Unknown]

NARRATIVE: CASE EVENT DATE: 20130114
